FAERS Safety Report 4937176-3 (Version None)
Quarter: 2006Q1

REPORT INFORMATION
  Report Type: 
  Country: None (occurrence: None)
  Receive Date: 20060307
  Receipt Date: 20060307
  Transmission Date: 20060701
  Serious: Yes (Life-Threatening, Hospitalization, Disabling, Other)
  Sender: FDA-Public Use
  Company Number: None

PATIENT
  Sex: Female
  Weight: 74.8435 kg

DRUGS (1)
  1. AMERGE [Suspect]
     Indication: MIGRAINE
     Dosage: 1 TABLET AT ONSET OF HEADACHE NOT TO EXCEED MG PO
     Route: 048
     Dates: start: 19970101, end: 20050711

REACTIONS (2)
  - CARDIAC ARREST [None]
  - MYOCARDIAL INFARCTION [None]
